FAERS Safety Report 4576911-3 (Version None)
Quarter: 2005Q1

REPORT INFORMATION
  Report Type: 
  Country: None (occurrence: None)
  Receive Date: 20050128
  Receipt Date: 20050128
  Transmission Date: 20050727
  Serious: Yes (Other)
  Sender: FDA-Public Use
  Company Number: None

PATIENT
  Sex: Female

DRUGS (3)
  1. VICODIN ES [Suspect]
     Indication: FIBROMYALGIA
     Dosage: 2 TABS 4 TIMES A DAY
  2. VICODIN ES [Suspect]
     Indication: OSTEOPENIA
     Dosage: 2 TABS 4 TIMES A DAY
  3. VICODIN ES [Suspect]
     Indication: PAIN
     Dosage: 2 TABS 4 TIMES A DAY

REACTIONS (1)
  - DRUG INEFFECTIVE [None]
